FAERS Safety Report 8300131 (Version 4)
Quarter: 2015Q2

REPORT INFORMATION
  Report Type: Spontaneous
  Country: US (occurrence: US)
  Receive Date: 20111219
  Receipt Date: 20150410
  Transmission Date: 20150821
  Serious: Yes (Hospitalization)
  Sender: FDA-Public Use
  Company Number: US-ASTRAZENECA-2011SE38446

PATIENT
  Age: 59 Year
  Sex: Female
  Weight: 90.7 kg

DRUGS (13)
  1. GLYBERIDE [Concomitant]
     Indication: DIABETES MELLITUS
     Route: 048
  2. CRESTOR [Suspect]
     Active Substance: ROSUVASTATIN CALCIUM
     Indication: BLOOD CHOLESTEROL INCREASED
     Route: 048
     Dates: end: 201410
  3. CRESTOR [Suspect]
     Active Substance: ROSUVASTATIN CALCIUM
     Indication: BLOOD CHOLESTEROL ABNORMAL
     Route: 048
     Dates: end: 201410
  4. METFORMIN [Concomitant]
     Active Substance: METFORMIN HYDROCHLORIDE
     Indication: BLOOD GLUCOSE ABNORMAL
     Route: 048
     Dates: start: 2014
  5. GLYBERIDE [Concomitant]
     Indication: BLOOD GLUCOSE ABNORMAL
     Route: 048
  6. ASPIRIN. [Concomitant]
     Active Substance: ASPIRIN
     Indication: CARDIOVASCULAR DISORDER
     Dosage: LOW DOSE, 81 MG DAILY
     Route: 048
     Dates: start: 2011
  7. LOSARTAN [Concomitant]
     Active Substance: LOSARTAN
     Indication: HYPERTENSION
  8. METFORMIN [Concomitant]
     Active Substance: METFORMIN HYDROCHLORIDE
     Indication: DIABETES MELLITUS
     Route: 048
     Dates: start: 2014
  9. VERAPAMIL [Concomitant]
     Active Substance: VERAPAMIL HYDROCHLORIDE
     Indication: HYPERTENSION
  10. GLYBERIDE [Concomitant]
     Indication: DIABETES MELLITUS
     Route: 048
  11. LANTUS [Concomitant]
     Active Substance: INSULIN GLARGINE
     Indication: DIABETES MELLITUS
     Route: 057
     Dates: start: 2014
  12. GLYBERIDE [Concomitant]
     Indication: BLOOD GLUCOSE ABNORMAL
     Route: 048
  13. VITAMIN B [Concomitant]
     Active Substance: VITAMIN B
     Indication: PAIN IN EXTREMITY
     Dosage: DAILY
     Route: 048
     Dates: start: 2005

REACTIONS (14)
  - Weight increased [Unknown]
  - Hypertension [Unknown]
  - Blood glucose increased [Unknown]
  - Arterial injury [Unknown]
  - Limb discomfort [Unknown]
  - Restless legs syndrome [Unknown]
  - Sensory loss [Unknown]
  - Intentional product misuse [Unknown]
  - Joint dislocation [Unknown]
  - Limb injury [Unknown]
  - Blood glucose decreased [Unknown]
  - Diabetes mellitus [Unknown]
  - Fall [Unknown]
  - Injury [Unknown]

NARRATIVE: CASE EVENT DATE: 2011
